FAERS Safety Report 9147936 (Version 2)
Quarter: 2013Q2

REPORT INFORMATION
  Report Type: Spontaneous
  Country: US (occurrence: US)
  Receive Date: 20130228
  Receipt Date: 20130506
  Transmission Date: 20140414
  Serious: Yes (Other)
  Sender: FDA-Public Use
  Company Number: US-RB-050390-13

PATIENT
  Age: 32 Year
  Sex: Female

DRUGS (1)
  1. SUBOXONE TABLETS [Suspect]
     Indication: DRUG DEPENDENCE
     Dosage: VARIED
     Route: 060
     Dates: start: 200607, end: 2010

REACTIONS (2)
  - Exposure during pregnancy [Recovered/Resolved]
  - Abortion spontaneous [Recovered/Resolved]
